FAERS Safety Report 20520179 (Version 5)
Quarter: 2022Q2

REPORT INFORMATION
  Report Type: Spontaneous
  Country: CO (occurrence: CO)
  Receive Date: 20220225
  Receipt Date: 20220531
  Transmission Date: 20220721
  Serious: Yes (Death, Life-Threatening, Hospitalization, Disabling, Other)
  Sender: FDA-Public Use
  Company Number: CO-009507513-2202COL000440

PATIENT
  Age: 65 Year
  Sex: Male

DRUGS (13)
  1. KEYTRUDA [Suspect]
     Active Substance: PEMBROLIZUMAB
     Indication: Oesophageal adenocarcinoma stage IV
     Dosage: UNK
     Dates: start: 20220108, end: 20220316
  2. CAPECITABINE [Concomitant]
     Active Substance: CAPECITABINE
     Indication: Oesophageal adenocarcinoma stage IV
     Dosage: CYCLICAL
     Dates: start: 20200912
  3. TRASTUZUMAB [Concomitant]
     Active Substance: TRASTUZUMAB
     Indication: Oesophageal adenocarcinoma stage IV
     Dosage: UNK
     Dates: start: 20200912
  4. LYRICA [Concomitant]
     Active Substance: PREGABALIN
     Indication: Pain
     Dosage: 75 MG/NIGHT
  5. ACETAMINOPHEN [Concomitant]
     Active Substance: ACETAMINOPHEN
  6. ANEMIDOX FOLICO [Concomitant]
  7. ETORICOXIB [Concomitant]
     Active Substance: ETORICOXIB
  8. FENTANYL [Concomitant]
     Active Substance: FENTANYL
     Dosage: 50 MICROGRAM EVERY 3 DAYS
  9. MORPHINE [Concomitant]
     Active Substance: MORPHINE
     Dosage: 10 DROPS EVERY 4 HOURS
  10. POLYETHYLENE GLYCOLS [Concomitant]
     Active Substance: POLYETHYLENE GLYCOLS
     Dosage: 20MG/DAY
  11. ESOMEPRAZOLE [Concomitant]
     Active Substance: ESOMEPRAZOLE
     Dosage: 20 MG/12H
  12. BISACODYL [Concomitant]
     Active Substance: BISACODYL
     Dosage: 5 MG/DAY
  13. LANSOPRAZOLE [Concomitant]
     Active Substance: LANSOPRAZOLE

REACTIONS (46)
  - Cardiopulmonary failure [Fatal]
  - Weber^s syndrome [Unknown]
  - Neurological decompensation [Unknown]
  - Ischaemic stroke [Recovered/Resolved with Sequelae]
  - Aortic valve incompetence [Unknown]
  - Cardiac failure chronic [Unknown]
  - Abdominal mass [Unknown]
  - Foreign body [Unknown]
  - Encephalomalacia [Unknown]
  - Dysphagia [Unknown]
  - Muscle atrophy [Unknown]
  - Pneumothorax [Unknown]
  - Aphasia [Unknown]
  - Faecaloma [Unknown]
  - Respiration abnormal [Unknown]
  - Cerebrovascular accident [Recovered/Resolved with Sequelae]
  - Deep vein thrombosis [Unknown]
  - Cataract [Unknown]
  - Jejunal stenosis [Unknown]
  - Hemiplegia [Unknown]
  - Hemiparesis [Unknown]
  - Cachexia [Unknown]
  - Thrombosis [Unknown]
  - Transfusion [Unknown]
  - Malignant neoplasm progression [Unknown]
  - Pneumonia [Unknown]
  - Addison^s disease [Unknown]
  - Hypothyroidism [Unknown]
  - Dysphagia [Recovered/Resolved]
  - Breath sounds abnormal [Unknown]
  - Malnutrition [Unknown]
  - Hypercoagulation [Unknown]
  - Sinus tachycardia [Unknown]
  - Productive cough [Unknown]
  - White blood cell count increased [Unknown]
  - Diverticulum intestinal [Unknown]
  - Gastrointestinal tube removal [Unknown]
  - Oxygen therapy [Unknown]
  - Restlessness [Unknown]
  - Gastrointestinal disorder [Unknown]
  - Abdominal distension [Unknown]
  - Paraesthesia [Unknown]
  - Pain [Unknown]
  - Anaemia [Unknown]
  - Constipation [Unknown]
  - Fatigue [Unknown]

NARRATIVE: CASE EVENT DATE: 20220101
